FAERS Safety Report 21242583 (Version 1)
Quarter: 2022Q3

REPORT INFORMATION
  Report Type: Spontaneous
  Country: JP (occurrence: JP)
  Receive Date: 20220823
  Receipt Date: 20220823
  Transmission Date: 20221027
  Serious: Yes (Hospitalization, Other)
  Sender: FDA-Public Use
  Company Number: JP-STRIDES ARCOLAB LIMITED-2022SP010560

PATIENT
  Age: 54 Year
  Sex: Female

DRUGS (12)
  1. ETOPOSIDE [Suspect]
     Active Substance: ETOPOSIDE
     Indication: Diffuse large B-cell lymphoma
     Dosage: UNK, 6 CYCLES OF DA-EPOCH-R REGIMEN
     Route: 065
  2. ETOPOSIDE [Suspect]
     Active Substance: ETOPOSIDE
     Indication: Peripheral T-cell lymphoma unspecified
  3. PREDNISOLONE [Suspect]
     Active Substance: PREDNISOLONE
     Indication: Diffuse large B-cell lymphoma
     Dosage: UNK, 6 CYCLES OF AN R-CHOP REGIMEN
     Route: 065
  4. PREDNISOLONE [Suspect]
     Active Substance: PREDNISOLONE
     Indication: Peripheral T-cell lymphoma unspecified
     Dosage: UNK, 6 CYCLES OF DA-EPOCH-R REGIMEN
     Route: 065
  5. DOXORUBICIN [Suspect]
     Active Substance: DOXORUBICIN
     Indication: Diffuse large B-cell lymphoma
     Dosage: 6 CYCLES OF AN R-CHOP REGIMEN
     Route: 065
  6. DOXORUBICIN [Suspect]
     Active Substance: DOXORUBICIN
     Indication: Peripheral T-cell lymphoma unspecified
     Dosage: 6 CYCLES OF DA-EPOCH-R REGIMEN
     Route: 065
  7. RITUXIMAB [Suspect]
     Active Substance: RITUXIMAB
     Indication: Diffuse large B-cell lymphoma
     Dosage: UNK, 6 CYCLES OF AN R-CHOP REGIMEN
     Route: 065
  8. RITUXIMAB [Suspect]
     Active Substance: RITUXIMAB
     Indication: Peripheral T-cell lymphoma unspecified
     Dosage: UNK, 6 CYCLES OF DA-EPOCH-R REGIMEN
     Route: 065
  9. VINCRISTINE [Suspect]
     Active Substance: VINCRISTINE
     Indication: Diffuse large B-cell lymphoma
     Dosage: UNK, 6 CYCLES OF AN R-CHOP REGIMEN
     Route: 065
  10. VINCRISTINE [Suspect]
     Active Substance: VINCRISTINE
     Indication: Peripheral T-cell lymphoma unspecified
     Dosage: UNK, 6 CYCLES OF DA-EPOCH-R REGIMEN
     Route: 065
  11. CYCLOPHOSPHAMIDE [Suspect]
     Active Substance: CYCLOPHOSPHAMIDE
     Indication: Diffuse large B-cell lymphoma
     Dosage: UNK, 6 CYCLES OF AN R-CHOP REGIMEN
     Route: 065
  12. CYCLOPHOSPHAMIDE [Suspect]
     Active Substance: CYCLOPHOSPHAMIDE
     Indication: Peripheral T-cell lymphoma unspecified
     Dosage: UNK, 6 CYCLES OF DA-EPOCH-R REGIMEN
     Route: 065

REACTIONS (4)
  - Myocarditis [Recovered/Resolved]
  - Cardiotoxicity [Recovered/Resolved]
  - Cardiac failure [Recovered/Resolved]
  - Off label use [Unknown]
